FAERS Safety Report 17877184 (Version 1)
Quarter: 2020Q2

REPORT INFORMATION
  Report Type: Spontaneous
  Country: CN (occurrence: CN)
  Receive Date: 20200609
  Receipt Date: 20200609
  Transmission Date: 20200714
  Serious: Yes (Hospitalization)
  Sender: FDA-Public Use
  Company Number: CN-GLAXOSMITHKLINE-CN2020APC092945

PATIENT
  Age: 10 Year

DRUGS (1)
  1. LAMICTAL [Suspect]
     Active Substance: LAMOTRIGINE
     Indication: EPILEPSY
     Dosage: 25 MG, QD
     Route: 048

REACTIONS (5)
  - Extra dose administered [Unknown]
  - Dermatitis allergic [Recovering/Resolving]
  - Rash erythematous [Unknown]
  - Pyrexia [Unknown]
  - Wrong technique in product usage process [Unknown]
